FAERS Safety Report 23098319 (Version 1)
Quarter: 2023Q4

REPORT INFORMATION
  Report Type: Other
  Country: None (occurrence: A1)
  Receive Date: 20231023
  Receipt Date: 20231023
  Transmission Date: 20240110
  Serious: Yes (Hospitalization)
  Sender: FDA-Public Use
  Company Number: A1-Nephron Pharmaceuticals Corporation-2147390

PATIENT
  Age: 61 Year
  Sex: Female

DRUGS (7)
  1. BUDESONIDE [Suspect]
     Active Substance: BUDESONIDE
     Indication: Colitis microscopic
  2. COLESEVELAM HYDROCHLORIDE [Concomitant]
     Active Substance: COLESEVELAM HYDROCHLORIDE
  3. TACROLIMUS [Concomitant]
     Active Substance: TACROLIMUS
  4. REMICADE [Concomitant]
     Active Substance: INFLIXIMAB
  5. VEDOLIZUMAB [Concomitant]
     Active Substance: VEDOLIZUMAB
  6. TOFACITINIB [Concomitant]
     Active Substance: TOFACITINIB
  7. OZANIMOD [Concomitant]
     Active Substance: OZANIMOD

REACTIONS (1)
  - Drug ineffective [Unknown]
